FAERS Safety Report 18503731 (Version 1)
Quarter: 2020Q4

REPORT INFORMATION
  Report Type: Spontaneous
  Country: US (occurrence: US)
  Receive Date: 20201113
  Receipt Date: 20201113
  Transmission Date: 20210114
  Serious: No
  Sender: FDA-Public Use
  Company Number: US-ASTRAZENECA-2020SF48108

PATIENT
  Age: 28401 Day
  Sex: Male
  Weight: 122.5 kg

DRUGS (4)
  1. VICTOZA [Concomitant]
     Active Substance: LIRAGLUTIDE
  2. BYDUREON [Suspect]
     Active Substance: EXENATIDE
     Indication: WEIGHT DECREASED
     Route: 058
     Dates: start: 20201026, end: 20201102
  3. TRULICITY [Concomitant]
     Active Substance: DULAGLUTIDE
  4. MOVANTIK [Concomitant]
     Active Substance: NALOXEGOL OXALATE

REACTIONS (6)
  - Pain [Not Recovered/Not Resolved]
  - Feeling abnormal [Unknown]
  - Weight increased [Unknown]
  - Increased appetite [Unknown]
  - Injection site haemorrhage [Not Recovered/Not Resolved]
  - Product use in unapproved indication [Unknown]

NARRATIVE: CASE EVENT DATE: 20201026
